FAERS Safety Report 7501483-0 (Version None)
Quarter: 2011Q2

REPORT INFORMATION
  Report Type: 
  Country: None (occurrence: None)
  Receive Date: 20110524
  Receipt Date: 20080927
  Transmission Date: 20111010
  Serious: Yes (Hospitalization, Other)
  Sender: FDA-Public Use
  Company Number: US-BAYER-200838753NA

PATIENT
  Age: 67 Year
  Sex: Female
  Weight: 91 kg

DRUGS (14)
  1. TRASYLOL [Suspect]
     Indication: AORTIC VALVE REPAIR
  2. TRASYLOL [Suspect]
     Indication: VASCULAR PSEUDOANEURYSM
     Dosage: . INITIAL (TEST) DOSE OF 1 ML
     Route: 042
     Dates: start: 20060622, end: 20060622
  3. TRASYLOL [Suspect]
     Indication: CORONARY ARTERY BYPASS
     Dosage: LOADING DOSE OF 2 MILLION UNITS, THEN INFUSION OF 50 CC/HR WAS GIVEN
     Route: 042
     Dates: start: 20060622, end: 20060622
  4. ACETYLSALICYLIC ACID SRT [Concomitant]
     Dosage: 81 MG./DAILY
     Route: 048
     Dates: start: 20060211
  5. DIOVAN HCT [Concomitant]
     Dosage: 160/25MG/DAILY
     Route: 048
     Dates: start: 20060211
  6. RED BLOOD CELLS [Concomitant]
     Dosage: 5 UNITS
     Dates: start: 20060622
  7. HEPARIN [Concomitant]
     Dosage: UNK
     Dates: start: 20060622
  8. PLATELETS [Concomitant]
     Dosage: 10 PACKS
     Dates: start: 20060622
  9. DIOVAN [Concomitant]
     Dosage: 80MG/ DAILY
     Route: 048
     Dates: start: 20060211
  10. LOVASTATIN [Concomitant]
     Dosage: 40MG/DAILY
     Route: 048
     Dates: start: 20060211
  11. ALBUMIN (HUMAN) [Concomitant]
     Dosage: 250 CC
     Dates: start: 20060622
  12. TOPROL-XL [Concomitant]
     Dosage: 50 MG./DAILY
     Route: 048
     Dates: start: 20060211
  13. PLASMA [Concomitant]
     Dosage: 3 UNITS
     Dates: start: 20060622
  14. NORVASC [Concomitant]
     Dosage: 5 MG.
     Route: 048
     Dates: start: 20060211

REACTIONS (10)
  - RENAL FAILURE [None]
  - PAIN [None]
  - RENAL IMPAIRMENT [None]
  - FEAR [None]
  - EMOTIONAL DISTRESS [None]
  - RENAL INJURY [None]
  - INJURY [None]
  - STRESS [None]
  - UNEVALUABLE EVENT [None]
  - ANXIETY [None]
